FAERS Safety Report 23663829 (Version 1)
Quarter: 2024Q1

REPORT INFORMATION
  Report Type: Other
  Country: CA (occurrence: CA)
  Receive Date: 20240322
  Receipt Date: 20240322
  Transmission Date: 20240410
  Serious: Yes (Other)
  Sender: FDA-Public Use
  Company Number: CA-APOTEX-2024AP003591

PATIENT
  Age: 45 Year
  Sex: Female

DRUGS (3)
  1. DOXYCYCLINE [Suspect]
     Active Substance: DOXYCYCLINE
     Indication: Staphylococcal infection
     Dosage: UNK
     Route: 065
  2. ENTYVIO [Suspect]
     Active Substance: VEDOLIZUMAB
     Indication: Crohn^s disease
     Dosage: 300 MILLIGRAM
     Route: 042
  3. ENTYVIO [Suspect]
     Active Substance: VEDOLIZUMAB
     Dosage: 300 MILLIGRAM, Q.I.W
     Route: 042

REACTIONS (16)
  - Anal incontinence [Recovering/Resolving]
  - Anastomotic ulcer [Recovering/Resolving]
  - Enteritis [Recovering/Resolving]
  - Flatulence [Recovering/Resolving]
  - Frequent bowel movements [Recovering/Resolving]
  - Gastrointestinal anastomotic complication [Recovering/Resolving]
  - Illness [Recovering/Resolving]
  - Off label use [Recovering/Resolving]
  - Staphylococcal infection [Recovering/Resolving]
  - Defaecation urgency [Recovering/Resolving]
  - Abdominal distension [Recovering/Resolving]
  - Gastrointestinal bacterial overgrowth [Recovering/Resolving]
  - Abdominal pain [Recovering/Resolving]
  - Abdominal pain lower [Recovering/Resolving]
  - Diarrhoea [Recovering/Resolving]
  - Therapeutic reaction time decreased [Recovering/Resolving]
